FAERS Safety Report 10340961 (Version 1)
Quarter: 2014Q3

REPORT INFORMATION
  Report Type: Spontaneous
  Country: US (occurrence: US)
  Receive Date: 20140724
  Receipt Date: 20140724
  Transmission Date: 20150326
  Serious: No
  Sender: FDA-Public Use
  Company Number: US-MYLANLABS-2013S1019252

PATIENT
  Age: 55 Year
  Sex: Female
  Weight: 72.58 kg

DRUGS (3)
  1. ADVAIR HFA [Concomitant]
     Active Substance: FLUTICASONE PROPIONATE\SALMETEROL XINAFOATE
     Dosage: 250/50MG
  2. LISINOPRIL. [Concomitant]
     Active Substance: LISINOPRIL
  3. LEVOTHYROXINE SODIUM TABLETS, USP [Suspect]
     Active Substance: LEVOTHYROXINE SODIUM
     Indication: HYPOTHYROIDISM
     Route: 048
     Dates: start: 20100812, end: 20130111

REACTIONS (3)
  - Anti-thyroid antibody [Not Recovered/Not Resolved]
  - Alopecia totalis [Not Recovered/Not Resolved]
  - Autoimmune disorder [Not Recovered/Not Resolved]

NARRATIVE: CASE EVENT DATE: 201302
